FAERS Safety Report 7634327-7 (Version None)
Quarter: 2011Q3

REPORT INFORMATION
  Report Type: 
  Country: None (occurrence: None)
  Receive Date: 20110725
  Receipt Date: 20100903
  Transmission Date: 20111222
  Serious: No
  Sender: FDA-Public Use
  Company Number: US-MYLANLABS-2010S1016446

PATIENT
  Age: 68 Year
  Sex: Male

DRUGS (5)
  1. BUSPIRONE HCL [Suspect]
     Indication: DEPRESSION
     Route: 048
     Dates: start: 20091217
  2. CITALOPRAM HYDROBROMIDE [Suspect]
     Indication: ANXIETY
     Route: 048
     Dates: start: 20091217
  3. CITALOPRAM HYDROBROMIDE [Suspect]
     Indication: DEPRESSION
     Route: 048
     Dates: start: 20091217
  4. LISINOPRIL [Concomitant]
     Indication: BLOOD PRESSURE INCREASED
  5. BUSPIRONE HCL [Suspect]
     Indication: ANXIETY
     Route: 048
     Dates: start: 20091217

REACTIONS (1)
  - EJACULATION DELAYED [None]
